FAERS Safety Report 4759840-1 (Version None)
Quarter: 2005Q3

REPORT INFORMATION
  Report Type: 
  Country: None (occurrence: None)
  Receive Date: 20050831
  Receipt Date: 20050831
  Transmission Date: 20060218
  Serious: Yes (Hospitalization)
  Sender: FDA-Public Use
  Company Number: None

PATIENT
  Age: 70 Year
  Sex: Male

DRUGS (35)
  1. RAPAMUNE [Suspect]
  2. SIROLIMUS [Concomitant]
  3. MYCOPHENOLATE MOFETIL [Concomitant]
  4. CELLCEPT [Concomitant]
  5. DILTIZEM [Concomitant]
  6. CARDIZEM CD [Concomitant]
  7. MULTI-VITAMIN [Concomitant]
  8. CALCIUM CARBONATE [Concomitant]
  9. OSCAL [Concomitant]
  10. ASPIRIN [Concomitant]
  11. RANITIDINE HCL [Concomitant]
  12. ZANTAC [Concomitant]
  13. DOXAZOSIN [Concomitant]
  14. CARDURA [Concomitant]
  15. SILDENAFIL [Concomitant]
  16. VIAGRA [Concomitant]
  17. FUROSEMIDE [Concomitant]
  18. LASIX [Concomitant]
  19. FOLIC ACID [Concomitant]
  20. VITAMIN B6 [Concomitant]
  21. CALCITONIN [Concomitant]
  22. MIACALCIN [Concomitant]
  23. GABAPENTIN [Concomitant]
  24. NEURONTIN [Concomitant]
  25. CLOTRIMAZOLE [Concomitant]
  26. MYCELEX [Concomitant]
  27. PROPOXYPHENE HCL AND ACETAMINOPHEN [Concomitant]
  28. DARVOCET-N 100 [Concomitant]
  29. CALCIUM ACETATE [Concomitant]
  30. PHOSLO [Concomitant]
  31. ATORVASTATIN CALCIUM [Concomitant]
  32. LIPITOR [Concomitant]
  33. ESOMEPRAZOLE [Concomitant]
  34. MAGNESIUM [Concomitant]
  35. NEXIUM [Concomitant]

REACTIONS (7)
  - ABDOMINAL PAIN [None]
  - ASTHENIA [None]
  - CHEST PAIN [None]
  - DIARRHOEA [None]
  - DYSPNOEA [None]
  - DYSPNOEA EXERTIONAL [None]
  - IMMUNOSUPPRESSANT DRUG LEVEL INCREASED [None]
